FAERS Safety Report 7363971-X (Version None)
Quarter: 2011Q1

REPORT INFORMATION
  Report Type: 
  Country: None (occurrence: None)
  Receive Date: 20110321
  Receipt Date: 20101123
  Transmission Date: 20110831
  Serious: Yes (Hospitalization)
  Sender: FDA-Public Use
  Company Number: US-TYCO HEALTHCARE/MALLINCKRODT-T201002158

PATIENT
  Sex: Male

DRUGS (10)
  1. METHADOSE [Suspect]
     Indication: BACK PAIN
     Dosage: ^LOW DOSE^
     Dates: start: 20091001
  2. METOPROLOL SUCCINATE [Concomitant]
     Dosage: UNK
  3. PRASUGREL [Concomitant]
     Dosage: UNK
  4. APIXIBAN [Concomitant]
     Indication: THROMBOSIS PROPHYLAXIS
     Dosage: 10 MG, QD
     Route: 048
     Dates: start: 20100816
  5. ASPIRIN [Concomitant]
     Dosage: UNK
     Dates: start: 20100813
  6. ATORVASTATIN CALCIUM [Concomitant]
     Dosage: UNK
     Dates: start: 20100813
  7. LOSARTAN POTASSIUM [Concomitant]
     Dosage: UNK
  8. LISINOPRIL [Concomitant]
     Dosage: UNK
     Dates: start: 20100816
  9. PLACEBO [Concomitant]
     Indication: THROMBOSIS PROPHYLAXIS
     Dosage: UNK
     Route: 048
     Dates: start: 20100816
  10. THIAZIDES [Concomitant]
     Dosage: UNK

REACTIONS (2)
  - DRUG WITHDRAWAL SYNDROME [None]
  - DRUG DEPENDENCE [None]
